FAERS Safety Report 22252288 (Version 1)
Quarter: 2023Q2

REPORT INFORMATION
  Report Type: Spontaneous
  Country: GB (occurrence: GB)
  Receive Date: 20230426
  Receipt Date: 20230426
  Transmission Date: 20230722
  Serious: Yes (Hospitalization)
  Sender: FDA-Public Use
  Company Number: None

PATIENT
  Sex: Female

DRUGS (9)
  1. CARBOPLATIN [Suspect]
     Active Substance: CARBOPLATIN
     Indication: Product used for unknown indication
     Dosage: CYCLE 1 DAY 1 330 MG IV INFUS AUC 6 (70%)
  2. PACLITAXEL [Suspect]
     Active Substance: PACLITAXEL
     Indication: Product used for unknown indication
     Dosage: (HIGH DOSE) CYCLE 1 DAY 1 270 MG IV INFUS 200 MG/MA (70%)
  3. PEMBROLIZUMAB [Suspect]
     Active Substance: PEMBROLIZUMAB
     Indication: Product used for unknown indication
     Dosage: 19/10/2022 CYCLE 1 DAY 1 200 MG IV INFUS
  4. AMITRIPTYLINE [Concomitant]
     Active Substance: AMITRIPTYLINE
     Dosage: 10MG TABLETS ONE TO BE TAKEN AT NIGHT
  5. BISOPROLOL [Concomitant]
     Active Substance: BISOPROLOL
     Dosage: 5 MG TABLETS ONE TO BE TAKEN EACH DAY
  6. GABAPENTIN [Concomitant]
     Active Substance: GABAPENTIN
     Dosage: 100MG CAPSULES ONE AM
  7. OMEPRAZOLE [Concomitant]
     Active Substance: OMEPRAZOLE
     Dosage: 20MG GASTRO-RESISTANT CAPSULES ONE TO BE TAKEN EACH DAY
  8. RAMIPRIL [Concomitant]
     Active Substance: RAMIPRIL
     Dosage: 10 MG CAPSULES ONE TO BE TAKEN EACH DAY
  9. ALBUTEROL [Concomitant]
     Active Substance: ALBUTEROL
     Dosage: 100MICROGRAMS/DOSE INHALER CFC FREE ONE OR TWO PUFFS TO BE INHALED UP TO FOUR TIMES A DAY

REACTIONS (3)
  - Myocarditis [Unknown]
  - Colitis [Unknown]
  - Nephropathy toxic [Unknown]
